FAERS Safety Report 24529092 (Version 2)
Quarter: 2024Q4

REPORT INFORMATION
  Report Type: Spontaneous
  Country: CH (occurrence: CH)
  Receive Date: 20241021
  Receipt Date: 20241216
  Transmission Date: 20250114
  Serious: Yes (Other)
  Sender: PFIZER
  Company Number: CH-PFIZER INC-PV202400134960

PATIENT
  Sex: Female

DRUGS (1)
  1. ELREXFIO [Suspect]
     Active Substance: ELRANATAMAB-BCMM
     Dosage: UNK

REACTIONS (5)
  - Pyelonephritis [Unknown]
  - Colitis [Unknown]
  - Cytomegalovirus viraemia [Unknown]
  - Staphylococcal infection [Unknown]
  - Bacterial disease carrier [Unknown]
